FAERS Safety Report 4387669-5 (Version None)
Quarter: 2004Q2

REPORT INFORMATION
  Report Type: 
  Country: None (occurrence: None)
  Receive Date: 20040630
  Receipt Date: 20040622
  Transmission Date: 20050107
  Serious: Yes (Hospitalization)
  Sender: FDA-Public Use
  Company Number: US-AMGEN-US081206

PATIENT
  Sex: Female
  Weight: 61 kg

DRUGS (3)
  1. EPOGEN [Suspect]
     Indication: PRE-EXISTING DISEASE
     Route: 058
     Dates: start: 20031124
  2. RIBAVIRIN [Suspect]
     Route: 048
     Dates: start: 20031114
  3. INTERFERON ALFA-2B [Suspect]
     Route: 058
     Dates: start: 20031114

REACTIONS (3)
  - HYPOKALAEMIA [None]
  - NAUSEA [None]
  - VOMITING [None]
